FAERS Safety Report 7170770-0 (Version None)
Quarter: 2010Q4

REPORT INFORMATION
  Report Type: 
  Country: None (occurrence: None)
  Receive Date: 20101206
  Receipt Date: 20090601
  Transmission Date: 20110411
  Serious: Yes (Disabling, Other)
  Sender: FDA-Public Use
  Company Number: APP201000265

PATIENT
  Sex: Female

DRUGS (2)
  1. HEPARIN SODIUM INJECTION [Suspect]
     Indication: MYOCARDIAL INFARCTION
     Dates: start: 20061001
  2. HEPARIN SODIUM INJECTION [Suspect]
     Indication: MYOCARDIAL INFARCTION
     Dates: start: 20080101

REACTIONS (6)
  - ASTHENIA [None]
  - DECREASED ACTIVITY [None]
  - HEPARIN-INDUCED THROMBOCYTOPENIA [None]
  - MULTIPLE INJURIES [None]
  - MYOCARDIAL INFARCTION [None]
  - PAIN [None]
